FAERS Safety Report 17606523 (Version 2)
Quarter: 2020Q4

REPORT INFORMATION
  Report Type: Spontaneous
  Country: OM (occurrence: OM)
  Receive Date: 20200331
  Receipt Date: 20201022
  Transmission Date: 20210113
  Serious: Yes (Other)
  Sender: FDA-Public Use
  Company Number: OM-BAUSCH-BL-2020-008853

PATIENT
  Age: 43 Year
  Sex: Female

DRUGS (1)
  1. GANCICLOVIR. [Suspect]
     Active Substance: GANCICLOVIR
     Indication: PRODUCT USED FOR UNKNOWN INDICATION
     Route: 065

REACTIONS (1)
  - Neutropenia [Unknown]
